FAERS Safety Report 9548105 (Version 2)
Quarter: 2013Q3

REPORT INFORMATION
  Report Type: Spontaneous
  Country: US (occurrence: US)
  Receive Date: 20130924
  Receipt Date: 20130924
  Transmission Date: 20140515
  Serious: No
  Sender: FDA-Public Use
  Company Number: US-009507513-1206USA03461

PATIENT
  Age: 6 Year
  Sex: Male

DRUGS (4)
  1. SINGULAIR [Suspect]
     Indication: ASTHMA
     Dosage: 5 MG, QD
     Route: 048
     Dates: start: 2012
  2. RITALIN [Concomitant]
  3. ADVAIR [Concomitant]
  4. PROAIR (ALBUTEROL SULFATE) [Concomitant]

REACTIONS (2)
  - Nightmare [Unknown]
  - Drug dose omission [Unknown]
